FAERS Safety Report 13287590 (Version 1)
Quarter: 2017Q1

REPORT INFORMATION
  Report Type: Spontaneous
  Country: US (occurrence: US)
  Receive Date: 20170302
  Receipt Date: 20170302
  Transmission Date: 20170428
  Serious: Yes (Other)
  Sender: FDA-Public Use
  Company Number: PHEH2017US005466

PATIENT
  Sex: Male

DRUGS (1)
  1. COSENTYX [Suspect]
     Active Substance: SECUKINUMAB
     Indication: PSORIATIC ARTHROPATHY
     Dosage: 300 MG, QMO
     Route: 058
     Dates: start: 20161115, end: 20170115

REACTIONS (3)
  - Blood creatine phosphokinase increased [Recovering/Resolving]
  - Drug prescribing error [Unknown]
  - Myositis [Unknown]

NARRATIVE: CASE EVENT DATE: 20161115
